APPROVED DRUG PRODUCT: MOTRIN
Active Ingredient: IBUPROFEN
Strength: 40MG/ML
Dosage Form/Route: SUSPENSION/DROPS;ORAL
Application: N020476 | Product #001
Applicant: MCNEIL CONSUMER PRODUCTS CO DIV MCNEILAB INC
Approved: May 25, 1995 | RLD: No | RS: No | Type: DISCN